FAERS Safety Report 5311786-6 (Version None)
Quarter: 2007Q2

REPORT INFORMATION
  Report Type: 
  Country: None (occurrence: None)
  Receive Date: 20070430
  Receipt Date: 20060310
  Transmission Date: 20071010
  Serious: No
  Sender: FDA-Public Use
  Company Number: 2006UW04156

PATIENT
  Age: 57 Year
  Sex: Female
  Weight: 82.1 kg

DRUGS (4)
  1. NEXIUM [Suspect]
     Indication: GASTROOESOPHAGEAL REFLUX DISEASE
     Route: 048
  2. LIVBID [Concomitant]
  3. ATENOLOL [Concomitant]
  4. LEXAPRO [Concomitant]

REACTIONS (2)
  - NAIL DISCOLOURATION [None]
  - SKIN DISCOLOURATION [None]
